FAERS Safety Report 4531202-1 (Version None)
Quarter: 2004Q4

REPORT INFORMATION
  Report Type: 
  Country: None (occurrence: None)
  Receive Date: 20041206
  Receipt Date: 20040831
  Transmission Date: 20050328
  Serious: No
  Sender: FDA-Public Use
  Company Number: USA040977132

PATIENT
  Age: 40 Year
  Sex: Female

DRUGS (1)
  1. CYMBALTA (DULOXETINE HYDROCHLORIDE) [Suspect]
     Indication: DEPRESSION
     Dosage: 60 MG DAY
     Dates: start: 20040824

REACTIONS (2)
  - MYDRIASIS [None]
  - TREMOR [None]
